FAERS Safety Report 10584711 (Version 1)
Quarter: 2014Q4

REPORT INFORMATION
  Report Type: Spontaneous
  Country: US (occurrence: None)
  Receive Date: 20141113
  Receipt Date: 20141113
  Transmission Date: 20150529
  Serious: Yes (Hospitalization)
  Sender: FDA-Public Use
  Company Number: None

PATIENT
  Age: 56 Year
  Sex: Female
  Weight: 87.9 kg

DRUGS (13)
  1. TYLENOL [Concomitant]
     Active Substance: ACETAMINOPHEN
  2. RIBAVIRIN. [Suspect]
     Active Substance: RIBAVIRIN
     Indication: HEPATITIS C
     Route: 048
     Dates: start: 20140629
  3. MAALOX ANTACID [Concomitant]
     Active Substance: ALUMINUM HYDROXIDE\DIMETHICONE\MAGNESIUM HYDROXIDE
  4. RAPAMUNA [Concomitant]
  5. LASIX [Concomitant]
     Active Substance: FUROSEMIDE
  6. SOFOSBUVIR 400MG [Suspect]
     Active Substance: SOFOSBUVIR
     Indication: HEPATITIS C
     Route: 048
     Dates: start: 20140629
  7. MYFORTIC [Concomitant]
     Active Substance: MYCOPHENOLATE SODIUM
  8. PANTOPRAZOLE [Concomitant]
     Active Substance: PANTOPRAZOLE SODIUM
  9. LABETALOL [Concomitant]
     Active Substance: LABETALOL\LABETALOL HYDROCHLORIDE
  10. ZOFRAN [Concomitant]
     Active Substance: ONDANSETRON HYDROCHLORIDE
  11. DIOVAN [Concomitant]
     Active Substance: VALSARTAN
  12. PREMARIN [Concomitant]
     Active Substance: ESTROGENS, CONJUGATED
  13. CARVEDILOL. [Concomitant]
     Active Substance: CARVEDILOL

REACTIONS (7)
  - Hepatic encephalopathy [None]
  - Pleural effusion [None]
  - Mental status changes [None]
  - Pneumonia [None]
  - Urinary tract infection [None]
  - Oedema [None]
  - Hallucination [None]

NARRATIVE: CASE EVENT DATE: 20140807
